FAERS Safety Report 5963136-X (Version None)
Quarter: 2008Q4

REPORT INFORMATION
  Report Type: 
  Country: None (occurrence: None)
  Receive Date: 20081120
  Receipt Date: 20081120
  Transmission Date: 20090506
  Serious: Yes (Other)
  Sender: FDA-Public Use
  Company Number: None

PATIENT
  Sex: Female
  Weight: 58.9676 kg

DRUGS (1)
  1. GUANFACINE HYDROCHLORIDE [Suspect]
     Indication: HYPERTENSION
     Dosage: 2 MG BID PO
     Route: 048
     Dates: start: 20081022, end: 20081118

REACTIONS (5)
  - BLOOD PRESSURE FLUCTUATION [None]
  - BLOOD PRESSURE INCREASED [None]
  - FEELING ABNORMAL [None]
  - HEART RATE INCREASED [None]
  - PRODUCT QUALITY ISSUE [None]
